FAERS Safety Report 9041088 (Version 2)
Quarter: 2013Q1

REPORT INFORMATION
  Report Type: Spontaneous
  Country: FR (occurrence: FR)
  Receive Date: 20130129
  Receipt Date: 20130304
  Transmission Date: 20140127
  Serious: Yes (Life-Threatening, Hospitalization)
  Sender: FDA-Public Use
  Company Number: FR-BRISTOL-MYERS SQUIBB COMPANY-17304924

PATIENT
  Age: 59 Year
  Sex: Male

DRUGS (10)
  1. SKENAN [Suspect]
     Indication: ANALGESIC THERAPY
     Dosage: MICROGRANULES SUSTAINED RELEASE IN CAPSULE
     Route: 048
     Dates: start: 20121203, end: 20121215
  2. ACTISKENAN [Suspect]
     Indication: ANALGESIC THERAPY
     Route: 048
     Dates: start: 20121203, end: 20121215
  3. ACTISKENAN [Suspect]
     Indication: ANALGESIC THERAPY
     Route: 048
     Dates: start: 20121203, end: 20121215
  4. CISPLATIN [Suspect]
     Indication: CHEMOTHERAPY
     Dosage: INTRAVENOUS INFUSION
     Route: 042
     Dates: start: 20121203
  5. TAXOTERE [Suspect]
     Indication: CHEMOTHERAPY
     Dosage: 160 MG/8 ML, CONCENTRATE FOR SOLUTION FOR INFUSION
     Route: 042
     Dates: start: 20121203
  6. 5-FLUOROURACIL [Suspect]
     Indication: CHEMOTHERAPY
     Route: 042
     Dates: start: 20121203, end: 20121208
  7. EMEND [Suspect]
     Dosage: CAPSULE
     Route: 048
     Dates: start: 20121203
  8. DEXAMETHASONE [Suspect]
     Dosage: DEXAMETHASONE MYLAN 4 MG/1 ML
     Route: 042
     Dates: start: 20121203
  9. ONDANSETRON [Suspect]
     Dosage: ONE INTAKE
     Route: 042
     Dates: start: 20121203
  10. LYRICA [Suspect]
     Indication: ANALGESIC THERAPY
     Route: 048
     Dates: start: 20121203, end: 20121215

REACTIONS (7)
  - Septic shock [Recovered/Resolved]
  - Lung disorder [Recovered/Resolved]
  - Renal failure acute [Recovered/Resolved]
  - Hepatocellular injury [Recovered/Resolved]
  - Diarrhoea [Recovered/Resolved]
  - Vomiting [Recovered/Resolved]
  - Acute respiratory distress syndrome [Recovered/Resolved]
